FAERS Safety Report 20419417 (Version 1)
Quarter: 2022Q1

REPORT INFORMATION
  Report Type: Spontaneous
  Country: US (occurrence: US)
  Receive Date: 20220203
  Receipt Date: 20220203
  Transmission Date: 20220423
  Serious: No
  Sender: FDA-Public Use
  Company Number: US-BRISTOL-MYERS SQUIBB COMPANY-BMS-2022-015086

PATIENT
  Age: 68 Year
  Sex: Female
  Weight: 81.646 kg

DRUGS (2)
  1. ORENCIA [Suspect]
     Active Substance: ABATACEPT
     Indication: Psoriatic arthropathy
     Dosage: 750 MILLIGRAM, Q4WK
     Route: 042
     Dates: start: 2021
  2. AZATHIOPRINE [Concomitant]
     Active Substance: AZATHIOPRINE
     Indication: Product used for unknown indication
     Dosage: UNK
     Route: 065

REACTIONS (2)
  - Oral herpes [Unknown]
  - Headache [Unknown]

NARRATIVE: CASE EVENT DATE: 20220129
